FAERS Safety Report 8438856-8 (Version None)
Quarter: 2012Q2

REPORT INFORMATION
  Report Type: 
  Country: None (occurrence: None)
  Receive Date: 20120323
  Receipt Date: 20111122
  Transmission Date: 20120825
  Serious: Yes (Hospitalization)
  Sender: FDA-Public Use
  Company Number: 163-21880-11062625

PATIENT
  Age: 60 Year
  Sex: Male

DRUGS (6)
  1. REVLIMID [Suspect]
     Indication: MULTIPLE MYELOMA
     Dosage: 25 MG, DAILY X 14 DAYS ON, THEN 7 DAYS OFF, PO
     Route: 048
     Dates: start: 20110601
  2. REVLIMID [Suspect]
     Indication: MULTIPLE MYELOMA
     Dosage: 25 MG, DAILY X 14 DAYS ON, THEN 7 DAYS OFF, PO
     Route: 048
     Dates: start: 20110207, end: 20110317
  3. ZOLADEX [Concomitant]
  4. REVLIMID [Suspect]
  5. DECADRON [Concomitant]
  6. ASPIRIN [Concomitant]

REACTIONS (2)
  - PAIN [None]
  - PNEUMONIA [None]
